FAERS Safety Report 22949276 (Version 3)
Quarter: 2023Q4

REPORT INFORMATION
  Report Type: Spontaneous
  Country: US (occurrence: US)
  Receive Date: 20230915
  Receipt Date: 20231112
  Transmission Date: 20240110
  Serious: No
  Sender: FDA-Public Use
  Company Number: US-NEUROCRINE BIOSCIENCES INC.-2023NBI07600

PATIENT
  Age: 69 Year
  Sex: Female

DRUGS (3)
  1. ONGENTYS [Suspect]
     Active Substance: OPICAPONE
     Indication: Parkinson^s disease
     Dosage: 50 MILLIGRAM, QOD
     Route: 048
  2. ONGENTYS [Suspect]
     Active Substance: OPICAPONE
     Dosage: 50 MILLIGRAM, QD
     Route: 048
  3. CELECOXIB [Suspect]
     Active Substance: CELECOXIB
     Indication: Depression
     Dosage: UNKNOWN
     Route: 065

REACTIONS (6)
  - Myalgia [Recovering/Resolving]
  - Dysarthria [Recovering/Resolving]
  - Therapeutic response unexpected [Unknown]
  - Dizziness [Recovering/Resolving]
  - Insomnia [Recovering/Resolving]
  - Inappropriate schedule of product administration [Unknown]
